FAERS Safety Report 14078980 (Version 1)
Quarter: 2017Q4

REPORT INFORMATION
  Report Type: Spontaneous
  Country: US (occurrence: US)
  Receive Date: 20171012
  Receipt Date: 20171012
  Transmission Date: 20180321
  Serious: No
  Sender: FDA-Public Use
  Company Number: US-MYLANLABS-2017M1025327

PATIENT
  Sex: Female
  Weight: 50 kg

DRUGS (1)
  1. XULANE [Suspect]
     Active Substance: ETHINYL ESTRADIOL\NORELGESTROMIN
     Indication: MENSTRUATION IRREGULAR
     Dosage: 1 DF, QW
     Route: 062
     Dates: start: 2016

REACTIONS (2)
  - Menorrhagia [Not Recovered/Not Resolved]
  - Product adhesion issue [Not Recovered/Not Resolved]
